FAERS Safety Report 9402420 (Version 2)
Quarter: 2013Q3

REPORT INFORMATION
  Report Type: Spontaneous
  Country: US (occurrence: US)
  Receive Date: 20130716
  Receipt Date: 20130830
  Transmission Date: 20140515
  Serious: No
  Sender: FDA-Public Use
  Company Number: US-VERTEX PHARMACEUTICALS INC-2013-007945

PATIENT
  Age: 59 Year
  Sex: Male
  Weight: 98 kg

DRUGS (13)
  1. INCIVEK [Suspect]
     Indication: HEPATITIS C
     Dosage: 750 MG, TID
     Route: 048
     Dates: start: 20130607, end: 20130705
  2. RIBAVIRIN [Suspect]
     Indication: HEPATITIS C
     Dosage: 600 MG, BID
     Route: 048
     Dates: start: 20130506
  3. RIBAVIRIN [Suspect]
     Dosage: UNK
  4. PEGASYS [Suspect]
     Indication: HEPATITIS C
     Dosage: 180 ?G, QW
     Route: 058
     Dates: start: 20130513
  5. LISINOPRIL [Concomitant]
     Dosage: 10 MG, QD
     Route: 048
     Dates: start: 20130417
  6. LORATADINE [Concomitant]
     Dosage: 10 MG, QD
     Route: 048
     Dates: start: 20130417
  7. LORAZEPAM [Concomitant]
     Dosage: 0.5 MG, QD
     Route: 048
     Dates: start: 20130417
  8. MELATONIN [Concomitant]
     Dosage: 1/2 MG/ML
     Route: 048
     Dates: start: 20130422
  9. SILYBUM MARIANUM EXTRACT [Concomitant]
     Dosage: 500 MG, TID
     Route: 048
     Dates: start: 20130422
  10. MULTIVITAMINS [Concomitant]
     Dosage: UNK
     Route: 048
  11. OMEGA-3 [Concomitant]
     Dosage: 900 MG, QD
     Dates: start: 20130417
  12. TESTOSTERONE [Concomitant]
     Dosage: 10 MG, QD
     Route: 060
     Dates: start: 20130417
  13. TIZANIDINE [Concomitant]
     Dosage: UNK
     Dates: start: 20130417

REACTIONS (2)
  - Rash erythematous [Recovered/Resolved]
  - Pruritus [Not Recovered/Not Resolved]
